FAERS Safety Report 9837944 (Version 2)
Quarter: 2014Q3

REPORT INFORMATION
  Report Type: Spontaneous
  Country: US (occurrence: US)
  Receive Date: 20140123
  Receipt Date: 20140725
  Transmission Date: 20150326
  Serious: Yes (Hospitalization, Other)
  Sender: FDA-Public Use
  Company Number: US-009507513-1401USA010242

PATIENT
  Sex: Female
  Weight: 121.54 kg

DRUGS (2)
  1. NUVARING [Suspect]
     Active Substance: ETHINYL ESTRADIOL\ETONOGESTREL
     Dosage: UNK
     Route: 067
     Dates: start: 20060626, end: 20070730
  2. NUVARING [Suspect]
     Active Substance: ETHINYL ESTRADIOL\ETONOGESTREL
     Indication: CONTRACEPTION
     Dosage: UNK
     Route: 067
     Dates: start: 20100306

REACTIONS (14)
  - Ovarian cyst [Unknown]
  - Depression [Unknown]
  - Dyslipidaemia [Unknown]
  - Inflammation [Unknown]
  - Hypercoagulation [Unknown]
  - Lung neoplasm [Unknown]
  - Diverticulum intestinal [Unknown]
  - Gastrooesophageal reflux disease [Unknown]
  - Asthma [Unknown]
  - Pulmonary embolism [Unknown]
  - Osteoarthritis [Unknown]
  - Spinal osteoarthritis [Unknown]
  - Hypertension [Unknown]
  - Convulsion [Unknown]

NARRATIVE: CASE EVENT DATE: 20100326
